FAERS Safety Report 5026342-7 (Version None)
Quarter: 2006Q2

REPORT INFORMATION
  Report Type: 
  Country: None (occurrence: None)
  Receive Date: 20060426
  Receipt Date: 20060130
  Transmission Date: 20061013
  Serious: Yes (Other)
  Sender: FDA-Public Use
  Company Number: 2006017585

PATIENT
  Age: 44 Year
  Sex: Female
  Weight: 96.6162 kg

DRUGS (13)
  1. LYRICA [Suspect]
     Indication: BACK PAIN
     Dosage: 50 MG (50 MG, 1 IN 1 D)
     Dates: start: 20060101, end: 20060101
  2. TOPAMAX [Concomitant]
  3. TRILEPTAL [Concomitant]
  4. ZELNORM [Concomitant]
  5. PREVACID [Concomitant]
  6. LEVBID (HYOSCYAMINE  SULFATE) [Concomitant]
  7. LIBRAX [Concomitant]
  8. CITRUCEL (METHYLCELLULOSE) [Concomitant]
  9. XANAX [Concomitant]
  10. LUNESTA [Concomitant]
  11. EFFEXOR [Concomitant]
  12. FEXOFENADINE HCL [Concomitant]
  13. AYGESTIN [Concomitant]

REACTIONS (4)
  - ABDOMINAL PAIN UPPER [None]
  - MALAISE [None]
  - MUSCLE SPASMS [None]
  - NAUSEA [None]
